FAERS Safety Report 5520916-2 (Version None)
Quarter: 2007Q4

REPORT INFORMATION
  Report Type: 
  Country: None (occurrence: None)
  Receive Date: 20071116
  Receipt Date: 20071116
  Transmission Date: 20080405
  Serious: Yes (Death)
  Sender: FDA-Public Use
  Company Number: None

PATIENT
  Age: 31 Year
  Sex: Female
  Weight: 92.9874 kg

DRUGS (4)
  1. CHANTIX [Suspect]
     Indication: SMOKING CESSATION THERAPY
     Dosage: 1MG BID PO; 1-2 WEEKS
     Route: 048
  2. ANTIHYPERTENSIVE AGENT [Concomitant]
  3. BCP [Concomitant]
  4. CYMBALTA [Concomitant]

REACTIONS (1)
  - DEATH [None]
